FAERS Safety Report 15295718 (Version 1)
Quarter: 2018Q3

REPORT INFORMATION
  Report Type: Spontaneous
  Country: US (occurrence: US)
  Receive Date: 20180820
  Receipt Date: 20180820
  Transmission Date: 20181010
  Serious: Yes (Other)
  Sender: FDA-Public Use
  Company Number: US-SA-2017SA260834

PATIENT
  Age: 55 Year
  Sex: Female
  Weight: 63.5 kg

DRUGS (12)
  1. MELATONIN [Concomitant]
     Active Substance: MELATONIN
  2. TAXOTERE [Suspect]
     Active Substance: DOCETAXEL
     Dosage: UNK UNK,Q3W
     Route: 042
     Dates: start: 20100810, end: 20100810
  3. ARIMIDEX [Concomitant]
     Active Substance: ANASTROZOLE
  4. ZYRTEC [Concomitant]
     Active Substance: CETIRIZINE HYDROCHLORIDE
  5. AROMASIN [Concomitant]
     Active Substance: EXEMESTANE
  6. BENADRYL [Concomitant]
     Active Substance: DIPHENHYDRAMINE HYDROCHLORIDE
  7. AZELASTINE. [Concomitant]
     Active Substance: AZELASTINE HYDROCHLORIDE
  8. SENOKOT [Concomitant]
     Active Substance: SENNOSIDES
  9. TAXOTERE [Suspect]
     Active Substance: DOCETAXEL
     Indication: BREAST CANCER
     Dosage: UNK UNK,Q3W
     Route: 042
     Dates: start: 20100317, end: 20100317
  10. PARAPLATIN [Concomitant]
     Active Substance: CARBOPLATIN
  11. TAXOL [Concomitant]
     Active Substance: PACLITAXEL
  12. DOCUSATE [Concomitant]
     Active Substance: DOCUSATE

REACTIONS (2)
  - Psychological trauma [Unknown]
  - Alopecia [Recovering/Resolving]

NARRATIVE: CASE EVENT DATE: 20100905
